FAERS Safety Report 12100927 (Version 2)
Quarter: 2016Q1

REPORT INFORMATION
  Report Type: Spontaneous
  Country: RU (occurrence: RU)
  Receive Date: 20160222
  Receipt Date: 20160328
  Transmission Date: 20160526
  Serious: Yes (Death)
  Sender: FDA-Public Use
  Company Number: RU-JNJFOC-20160218399

PATIENT
  Age: 72 Year
  Sex: Male

DRUGS (7)
  1. XARELTO [Suspect]
     Active Substance: RIVAROXABAN
     Indication: ATRIAL FIBRILLATION
     Route: 048
     Dates: start: 20160212
  2. ETHACIZINE [Concomitant]
     Active Substance: ETHACIZINE
     Route: 065
  3. HARTIL [Concomitant]
     Route: 065
  4. EPLERENONE. [Concomitant]
     Active Substance: EPLERENONE
     Route: 065
  5. BISOPROLOL [Concomitant]
     Active Substance: BISOPROLOL
     Route: 065
  6. XARELTO [Suspect]
     Active Substance: RIVAROXABAN
     Indication: CEREBROVASCULAR ACCIDENT PROPHYLAXIS
     Route: 048
     Dates: start: 20160212
  7. TIABENDAZOLE [Concomitant]
     Active Substance: THIABENDAZOLE
     Route: 065

REACTIONS (3)
  - Abdominal pain [Unknown]
  - Death [Fatal]
  - Blood pressure decreased [Unknown]
